FAERS Safety Report 8100631-1 (Version None)
Quarter: 2012Q1

REPORT INFORMATION
  Report Type: 
  Country: None (occurrence: None)
  Receive Date: 20120131
  Receipt Date: 20120127
  Transmission Date: 20120608
  Serious: Yes (Other)
  Sender: FDA-Public Use
  Company Number: US-PFIZER INC-2011316566

PATIENT
  Sex: Female
  Weight: 65.76 kg

DRUGS (12)
  1. CHANTIX [Suspect]
     Dosage: 0.5 MG, 1X/DAY
     Route: 048
     Dates: start: 20111128, end: 20110101
  2. CHANTIX [Suspect]
     Indication: SMOKING CESSATION THERAPY
     Dosage: UNK
     Route: 048
     Dates: start: 20110107, end: 20110101
  3. ASPIRIN [Concomitant]
     Dosage: 81 MG, UNK
  4. SINGULAIR [Concomitant]
     Dosage: UNK, DAILY
  5. CHANTIX [Suspect]
     Dosage: 1 MG, 2X/DAY
     Route: 048
     Dates: start: 20111201, end: 20111201
  6. CHANTIX [Suspect]
     Dosage: UNK
     Route: 048
     Dates: start: 20111201
  7. OMEPRAZOLE [Concomitant]
     Indication: HIATUS HERNIA
     Dosage: UNK
  8. CELEXA [Concomitant]
     Indication: ANXIETY
     Dosage: 60 MG, 1X/DAY
  9. HYDROCHLOROTHIAZIDE [Concomitant]
     Indication: HYPERTENSION
     Dosage: UNK, DAILY
  10. PREVACID [Concomitant]
     Indication: HIATUS HERNIA
     Dosage: 20 MG, DAILY
  11. ATACAND [Concomitant]
     Indication: HYPERTENSION
     Dosage: 16 MG, DAILY
  12. LIPITOR [Concomitant]
     Indication: BLOOD CHOLESTEROL ABNORMAL
     Dosage: 40 MG, DAILY

REACTIONS (5)
  - DRUG INEFFECTIVE [None]
  - NAUSEA [None]
  - WITHDRAWAL SYNDROME [None]
  - FEELING ABNORMAL [None]
  - FRUSTRATION [None]
